FAERS Safety Report 7779150-8 (Version None)
Quarter: 2011Q3

REPORT INFORMATION
  Report Type: 
  Country: None (occurrence: None)
  Receive Date: 20110926
  Receipt Date: 20110921
  Transmission Date: 20111222
  Serious: Yes (Other)
  Sender: FDA-Public Use
  Company Number: PHHO2011EG15480

PATIENT
  Sex: Male
  Weight: 55 kg

DRUGS (3)
  1. LYRICA [Concomitant]
     Indication: BONE PAIN
     Dosage: 150 MG, BID
     Route: 048
     Dates: start: 20110428
  2. EVEROLIMUS [Suspect]
     Indication: METASTATIC RENAL CELL CARCINOMA
     Dosage: 10 MG, UNK
     Route: 048
     Dates: start: 20110305, end: 20110802
  3. NEUROBION [Concomitant]
     Indication: PARAESTHESIA
     Dosage: 1000 MG, EVERY OTHER DAY
     Route: 030
     Dates: start: 20110404

REACTIONS (2)
  - CONCOMITANT DISEASE PROGRESSION [None]
  - ASPARTATE AMINOTRANSFERASE INCREASED [None]
